FAERS Safety Report 19529266 (Version 1)
Quarter: 2021Q3

REPORT INFORMATION
  Report Type: Spontaneous
  Country: US (occurrence: US)
  Receive Date: 20210713
  Receipt Date: 20210713
  Transmission Date: 20211014
  Serious: No
  Sender: FDA-Public Use
  Company Number: US-MYLANLABS-2021M1033681

PATIENT
  Sex: Female
  Weight: 61 kg

DRUGS (1)
  1. CLONIDINE TRANSDERMAL SYSTEM [Suspect]
     Active Substance: CLONIDINE
     Indication: HOT FLUSH
     Dosage: 0.01 MILLIGRAM, QW, 1 PATCH A WEEK
     Route: 062
     Dates: start: 20210526

REACTIONS (1)
  - Off label use [Not Recovered/Not Resolved]
